FAERS Safety Report 6741185-1 (Version None)
Quarter: 2010Q2

REPORT INFORMATION
  Report Type: 
  Country: None (occurrence: None)
  Receive Date: 20100526
  Receipt Date: 20100522
  Transmission Date: 20101027
  Serious: Yes (Life-Threatening, Hospitalization)
  Sender: FDA-Public Use
  Company Number: JP-TYCO HEALTHCARE/MALLINCKRODT-T201000993

PATIENT
  Age: 67 Year
  Sex: Female
  Weight: 50 kg

DRUGS (8)
  1. OPTIRAY 350 [Suspect]
     Indication: COMPUTERISED TOMOGRAM
     Dosage: 2 ML, SINGLE
     Route: 042
     Dates: start: 20100410, end: 20100410
  2. HYDROCORTISONE [Concomitant]
     Indication: PREMEDICATION
     Dosage: 100 MG, SINGLE
     Route: 042
     Dates: start: 20100410, end: 20100410
  3. SALINE                             /00075401/ [Concomitant]
     Indication: PREMEDICATION
     Dosage: 100 ML, SINGLE
     Route: 042
     Dates: start: 20100410, end: 20100410
  4. AMLODIPINE BESYLATE [Concomitant]
     Indication: HYPERTENSION
     Dosage: 5 MG, QD
     Route: 048
  5. CARVEDILOL [Concomitant]
     Indication: HYPERTENSION
     Dosage: 10 MG, QD
     Route: 048
  6. LOXOPROFEN SODIUM [Concomitant]
     Indication: CANCER PAIN
     Dosage: 60 MG, TID
     Route: 048
  7. ETIZOLAM [Concomitant]
     Dosage: 0.5 MG, TID
     Route: 048
  8. TEGAFUR, GIMERACIL, OTERACIL POTASSIUM [Concomitant]
     Dosage: 2 CAP BID
     Route: 048
     Dates: end: 20100401

REACTIONS (1)
  - ANAPHYLACTIC SHOCK [None]
